FAERS Safety Report 17430677 (Version 1)
Quarter: 2020Q1

REPORT INFORMATION
  Report Type: Spontaneous
  Country: US (occurrence: US)
  Receive Date: 20200217
  Receipt Date: 20200217
  Transmission Date: 20200409
  Serious: No
  Sender: FDA-Public Use
  Company Number: None

PATIENT
  Age: 40 Year
  Sex: Male
  Weight: 75.6 kg

DRUGS (19)
  1. SENNA FAMOTADINE [Concomitant]
  2. MAGNESIUM [Concomitant]
     Active Substance: MAGNESIUM
  3. VITAMIN D [Concomitant]
     Active Substance: VITAMIN D NOS
  4. MS CONTIN [Concomitant]
     Active Substance: MORPHINE SULFATE
  5. CANNABIS [Concomitant]
     Active Substance: CANNABIS SATIVA SUBSP. INDICA TOP
  6. BACLOFEN. [Concomitant]
     Active Substance: BACLOFEN
  7. PROBIOTICS [Concomitant]
     Active Substance: PROBIOTICS NOS
  8. ESSENTIAL OILS. [Concomitant]
     Active Substance: ESSENTIAL OILS
  9. TESOSTERONE [Concomitant]
  10. CBD [Concomitant]
     Active Substance: CANNABIDIOL
  11. OXYCONTIN [Suspect]
     Active Substance: OXYCODONE HYDROCHLORIDE
     Indication: PAIN IN EXTREMITY
     Dosage: ?          QUANTITY:60 TABLET(S);?
     Route: 048
  12. GABAPENTON [Concomitant]
  13. MELOXOCAM [Concomitant]
  14. KEFIR [Concomitant]
  15. DSMO [Concomitant]
  16. VITAMIN C [Concomitant]
     Active Substance: ASCORBIC ACID
  17. ENSURE [Concomitant]
     Active Substance: AMINO ACIDS\DEXTROSE\ELECTROLYTES NOS\SOYBEAN OIL\VITAMINS
  18. PLANT PROTIEN [Concomitant]
  19. D-LIMONENE [Concomitant]

REACTIONS (4)
  - Product contamination physical [None]
  - Carcinogenicity [None]
  - Drug ineffective [None]
  - Gastrointestinal disorder [None]
